FAERS Safety Report 9506515 (Version 1)
Quarter: 2013Q3

REPORT INFORMATION
  Report Type: Report from Study
  Country: BR (occurrence: BR)
  Receive Date: 20130906
  Receipt Date: 20130906
  Transmission Date: 20140515
  Serious: Yes (Other)
  Sender: FDA-Public Use
  Company Number: PHHY2013BR098389

PATIENT
  Sex: Male

DRUGS (3)
  1. RIVASTIGMINE [Suspect]
     Indication: MEMORY IMPAIRMENT
     Dosage: 5 MG UNK
  2. RIVASTIGMINE [Suspect]
     Dosage: 1 DF (10 MG) DAILY
  3. RIVASTIGMINE [Suspect]
     Dosage: 0.75 DF (10 MG) DAILY

REACTIONS (5)
  - Ischaemia [Recovered/Resolved]
  - Dizziness [Recovered/Resolved]
  - Vomiting [Recovered/Resolved]
  - Diarrhoea [Recovered/Resolved]
  - Malaise [Recovered/Resolved]
